FAERS Safety Report 23823251 (Version 4)
Quarter: 2024Q2

REPORT INFORMATION
  Report Type: Spontaneous
  Country: AU (occurrence: AU)
  Receive Date: 20240507
  Receipt Date: 20240617
  Transmission Date: 20240716
  Serious: Yes (Hospitalization)
  Sender: FDA-Public Use
  Company Number: AU-HALEON-2171228

PATIENT
  Age: 8 Month
  Sex: Female

DRUGS (1)
  1. ACETAMINOPHEN [Suspect]
     Active Substance: ACETAMINOPHEN
     Indication: Pyrexia
     Dates: start: 20240427, end: 20240428

REACTIONS (5)
  - Choking [Recovered/Resolved]
  - Recalled product administered [Unknown]
  - Cyanosis [Recovered/Resolved]
  - Hypotonia [Recovered/Resolved]
  - Vomiting [Recovered/Resolved]

NARRATIVE: CASE EVENT DATE: 20240427
